FAERS Safety Report 25743643 (Version 1)
Quarter: 2025Q3

REPORT INFORMATION
  Report Type: Spontaneous
  Country: US (occurrence: US)
  Receive Date: 20250831
  Receipt Date: 20250831
  Transmission Date: 20251020
  Serious: No
  Sender: SANOFI AVENTIS
  Company Number: US-SA-2025SA258616

PATIENT
  Age: 72 Year
  Sex: Female

DRUGS (1)
  1. DUPIXENT [Suspect]
     Active Substance: DUPILUMAB
     Indication: Eczema
     Route: 058
     Dates: start: 20250815, end: 20250815

REACTIONS (3)
  - Rash pruritic [Recovering/Resolving]
  - Rash vesicular [Unknown]
  - Skin wound [Unknown]

NARRATIVE: CASE EVENT DATE: 20250801
